FAERS Safety Report 12821728 (Version 1)
Quarter: 2016Q4

REPORT INFORMATION
  Report Type: Report from Study
  Country: US (occurrence: US)
  Receive Date: 20161006
  Receipt Date: 20161006
  Transmission Date: 20170207
  Serious: No
  Sender: FDA-Public Use
  Company Number: US-AMGEN-USASL2016031161

PATIENT
  Age: 56 Year
  Sex: Female

DRUGS (1)
  1. PROLIA [Suspect]
     Active Substance: DENOSUMAB
     Indication: OSTEOPENIA
     Dosage: UNK
     Route: 065

REACTIONS (8)
  - Anxiety [Unknown]
  - Off label use [Unknown]
  - Chest pain [Unknown]
  - Back pain [Unknown]
  - Musculoskeletal pain [Unknown]
  - Tearfulness [Unknown]
  - Pain in extremity [Unknown]
  - Pain [Unknown]
